FAERS Safety Report 10252026 (Version 1)
Quarter: 2014Q2

REPORT INFORMATION
  Report Type: Spontaneous
  Country: ZA (occurrence: ZA)
  Receive Date: 20140623
  Receipt Date: 20140623
  Transmission Date: 20141212
  Serious: Yes (Hospitalization)
  Sender: FDA-Public Use
  Company Number: PHHY2014ZA074917

PATIENT
  Age: 79 Year
  Sex: Female

DRUGS (5)
  1. ZOMEVEK [Suspect]
     Indication: HYPERTENSION
     Dosage: 160 MG, UNK
     Dates: start: 201402
  2. CO-ZOMEVEK [Suspect]
     Indication: HYPERTENSION
     Dosage: UNK UKN, UNK
     Dates: start: 201406
  3. BRINERDIN [Suspect]
     Indication: HYPERTENSION
     Dosage: UNK UKN, UNK
     Dates: end: 201312
  4. BRINERDIN [Suspect]
     Dosage: UNK UKN, UNK
     Dates: start: 201404
  5. BRINERDIN [Suspect]
     Dosage: UNK UKN, UNK
     Dates: start: 201406

REACTIONS (7)
  - Cystitis [Unknown]
  - Pollakiuria [Unknown]
  - Feeling abnormal [Unknown]
  - Dysuria [Unknown]
  - Bladder pain [Unknown]
  - Bladder disorder [Unknown]
  - Constipation [Unknown]
